FAERS Safety Report 20096085 (Version 2)
Quarter: 2021Q4

REPORT INFORMATION
  Report Type: Report from Study
  Country: JP (occurrence: JP)
  Receive Date: 20211122
  Receipt Date: 20211209
  Transmission Date: 20220303
  Serious: Yes (Hospitalization, Other)
  Sender: FDA-Public Use
  Company Number: JP-TEVA-2021-JP-1980877

PATIENT
  Age: 56 Year
  Sex: Male

DRUGS (9)
  1. RASAGILINE MESYLATE [Suspect]
     Active Substance: RASAGILINE MESYLATE
     Indication: Parkinson^s disease
     Dosage: 1 MILLIGRAM DAILY;
     Route: 065
     Dates: start: 20190716, end: 20201021
  2. LEVODOPA [Concomitant]
     Active Substance: LEVODOPA
  3. STALEVO [Concomitant]
     Active Substance: CARBIDOPA\ENTACAPONE\LEVODOPA
  4. ISTRADEFYLLINE [Concomitant]
     Active Substance: ISTRADEFYLLINE
  5. IMIDAFENACIN [Concomitant]
     Active Substance: IMIDAFENACIN
  6. ETIZOLAM [Concomitant]
     Active Substance: ETIZOLAM
  7. EDOXABAN TOSYLATE [Concomitant]
     Active Substance: EDOXABAN TOSYLATE
  8. VASOLAN [Concomitant]
  9. EDOXABAN TOSYLATE [Concomitant]
     Active Substance: EDOXABAN TOSYLATE

REACTIONS (1)
  - Hallucination [Recovering/Resolving]

NARRATIVE: CASE EVENT DATE: 20201020
